FAERS Safety Report 13965789 (Version 1)
Quarter: 2017Q3

REPORT INFORMATION
  Report Type: Spontaneous
  Country: US (occurrence: US)
  Receive Date: 20170913
  Receipt Date: 20170913
  Transmission Date: 20171128
  Serious: Yes (Hospitalization, Other)
  Sender: FDA-Public Use
  Company Number: US-JNJFOC-20170905063

PATIENT
  Age: 85 Year
  Sex: Male
  Weight: 80.29 kg

DRUGS (3)
  1. PANCREAZE [Suspect]
     Active Substance: PANCRELIPASE AMYLASE\PANCRELIPASE LIPASE\PANCRELIPASE PROTEASE
     Indication: DYSPEPSIA
     Route: 048
  2. CREON [Suspect]
     Active Substance: PANCRELIPASE AMYLASE\PANCRELIPASE LIPASE\PANCRELIPASE PROTEASE
     Indication: PRODUCT USED FOR UNKNOWN INDICATION
     Route: 065
     Dates: start: 2017
  3. PANCREAZE [Suspect]
     Active Substance: PANCRELIPASE AMYLASE\PANCRELIPASE LIPASE\PANCRELIPASE PROTEASE
     Indication: DYSPEPSIA
     Route: 065
     Dates: start: 2002

REACTIONS (11)
  - Thrombosis [Recovered/Resolved]
  - Fall [Unknown]
  - Abnormal loss of weight [Not Recovered/Not Resolved]
  - Dementia [Not Recovered/Not Resolved]
  - Hip fracture [Unknown]
  - Product use complaint [Unknown]
  - Pneumonia [Recovered/Resolved]
  - Body height decreased [Not Recovered/Not Resolved]
  - Urinary tract infection [Recovered/Resolved]
  - Wrong technique in product usage process [Unknown]
  - Gait inability [Not Recovered/Not Resolved]

NARRATIVE: CASE EVENT DATE: 2002
